FAERS Safety Report 20640667 (Version 2)
Quarter: 2022Q4

REPORT INFORMATION
  Report Type: Spontaneous
  Country: US (occurrence: US)
  Receive Date: 20220327
  Receipt Date: 20221010
  Transmission Date: 20230112
  Serious: No
  Sender: FDA-Public Use
  Company Number: US-SA-SAC20220322000274

PATIENT
  Age: 64 Year
  Sex: Female

DRUGS (2)
  1. AUBAGIO [Suspect]
     Active Substance: TERIFLUNOMIDE
     Indication: Multiple sclerosis
     Dosage: 14 MG, QD
     Route: 048
     Dates: start: 20210501
  2. TIZANIDINE [Concomitant]
     Active Substance: TIZANIDINE

REACTIONS (6)
  - Muscle spasms [Not Recovered/Not Resolved]
  - Muscle spasticity [Unknown]
  - Musculoskeletal stiffness [Unknown]
  - Bladder disorder [Unknown]
  - Abdominal discomfort [Unknown]
  - Cyst [Recovered/Resolved]
